FAERS Safety Report 5616504-X (Version None)
Quarter: 2008Q1

REPORT INFORMATION
  Report Type: 
  Country: None (occurrence: None)
  Receive Date: 20080207
  Receipt Date: 20080205
  Transmission Date: 20080703
  Serious: Yes (Hospitalization, Other)
  Sender: FDA-Public Use
  Company Number: US-BRISTOL-MYERS SQUIBB COMPANY-14066013

PATIENT
  Age: 70 Year
  Sex: Female

DRUGS (12)
  1. COUMADIN [Suspect]
     Indication: PULMONARY EMBOLISM
     Dates: end: 20071203
  2. REBIF [Suspect]
     Indication: MULTIPLE SCLEROSIS
     Route: 058
     Dates: start: 20071127, end: 20071203
  3. FOSAMAX [Concomitant]
     Indication: ARTHRITIS
  4. LASIX [Concomitant]
     Indication: OEDEMA PERIPHERAL
  5. ZANTAC [Concomitant]
  6. PREDNISONE TAB [Concomitant]
     Indication: AUTOIMMUNE HEPATITIS
  7. METFORMIN HCL [Concomitant]
     Indication: DIABETES MELLITUS
  8. ORLISTAT [Concomitant]
  9. VITAMINS [Concomitant]
  10. PRILOSEC [Concomitant]
     Indication: DYSPEPSIA
  11. GABAPENTIN [Concomitant]
     Indication: CONVULSION
  12. METOCLOPRAMIDE [Concomitant]
     Indication: DYSPEPSIA

REACTIONS (7)
  - ANAEMIA [None]
  - CHEST PAIN [None]
  - DYSPNOEA [None]
  - FATIGUE [None]
  - INFLUENZA LIKE ILLNESS [None]
  - NAUSEA [None]
  - UNRESPONSIVE TO STIMULI [None]
